FAERS Safety Report 4843769-4 (Version None)
Quarter: 2005Q4

REPORT INFORMATION
  Report Type: 
  Country: None (occurrence: None)
  Receive Date: 20051202
  Receipt Date: 20051128
  Transmission Date: 20060501
  Serious: Yes (Hospitalization)
  Sender: FDA-Public Use
  Company Number: JP-AVENTIS-200513561JP

PATIENT
  Age: 27 Year
  Sex: Male

DRUGS (2)
  1. KETEK [Suspect]
     Dates: start: 20040501, end: 20040501
  2. UNKNOWN DRUG [Suspect]

REACTIONS (1)
  - OCULOMUCOCUTANEOUS SYNDROME [None]
